FAERS Safety Report 8415544-5 (Version None)
Quarter: 2012Q2

REPORT INFORMATION
  Report Type: 
  Country: None (occurrence: None)
  Receive Date: 20120530
  Receipt Date: 20120515
  Transmission Date: 20120825
  Serious: Yes (Death, Hospitalization, Other)
  Sender: FDA-Public Use
  Company Number: 2012SGN00147

PATIENT
  Age: 51 Year
  Sex: Female

DRUGS (2)
  1. ADCETRIS [Suspect]
     Indication: HODGKIN'S DISEASE
     Dosage: 1.8 MG/KG,
     Dates: start: 20120127, end: 20120312
  2. ADCETRIS [Suspect]
     Indication: STEM CELL TRANSPLANT
     Dosage: 1.8 MG/KG,
     Dates: start: 20120127, end: 20120312

REACTIONS (4)
  - MOTOR DYSFUNCTION [None]
  - MENTAL STATUS CHANGES [None]
  - VASCULITIS [None]
  - ISCHAEMIC CEREBRAL INFARCTION [None]
